FAERS Safety Report 9753848 (Version 1)
Quarter: 2013Q4

REPORT INFORMATION
  Report Type: Spontaneous
  Country: US (occurrence: US)
  Receive Date: 20131213
  Receipt Date: 20131213
  Transmission Date: 20140711
  Serious: Yes (Hospitalization)
  Sender: FDA-Public Use
  Company Number: US-GILEAD-2010-0027560

PATIENT
  Age: 80 Year
  Sex: Male

DRUGS (8)
  1. LETAIRIS [Suspect]
     Indication: PULMONARY ARTERIAL HYPERTENSION
     Route: 048
     Dates: start: 20091103, end: 20100221
  2. FUROSEMIDE [Concomitant]
  3. LISINOPRIL [Concomitant]
  4. METOPROLOL [Concomitant]
  5. AMLODEPINE [Concomitant]
  6. PEG [Concomitant]
  7. OMEPRAZOLE [Concomitant]
  8. LIPITOR [Concomitant]

REACTIONS (1)
  - Fluid retention [Unknown]
